FAERS Safety Report 11571048 (Version 2)
Quarter: 2015Q4

REPORT INFORMATION
  Report Type: Spontaneous
  Country: US (occurrence: US)
  Receive Date: 20150916
  Receipt Date: 20151027
  Transmission Date: 20160304
  Serious: No
  Sender: FDA-Public Use
  Company Number: US-ELI_LILLY_AND_COMPANY-US200909003766

PATIENT
  Sex: Female

DRUGS (4)
  1. FOSAMAX [Concomitant]
     Active Substance: ALENDRONATE SODIUM
  2. FORTEO [Suspect]
     Active Substance: TERIPARATIDE
     Indication: OSTEOPOROSIS
     Dosage: 20 UG, DAILY (1/D)
     Dates: start: 20090827, end: 2009
  3. FORTEO [Suspect]
     Active Substance: TERIPARATIDE
     Dosage: 20 UG, DAILY (1/D)
     Dates: start: 2009, end: 20091225
  4. CALCIUM [Concomitant]
     Active Substance: CALCIUM

REACTIONS (10)
  - Sleep disorder [Unknown]
  - Abdominal distension [Recovered/Resolved]
  - Weight increased [Not Recovered/Not Resolved]
  - Muscle spasms [Unknown]
  - Anxiety [Unknown]
  - Pain in extremity [Recovering/Resolving]
  - Arthralgia [Recovering/Resolving]
  - Pain [Unknown]
  - Injection site mass [Unknown]
  - Bacterial infection [Unknown]

NARRATIVE: CASE EVENT DATE: 2009
